FAERS Safety Report 22651783 (Version 1)
Quarter: 2023Q2

REPORT INFORMATION
  Report Type: Spontaneous
  Country: US (occurrence: US)
  Receive Date: 20230628
  Receipt Date: 20230628
  Transmission Date: 20230722
  Serious: No
  Sender: FDA-Public Use
  Company Number: US-CTI BIOPHARMA-2023US03593

PATIENT

DRUGS (16)
  1. VONJO [Suspect]
     Active Substance: PACRITINIB
     Indication: Chronic myeloid leukaemia
     Dosage: 200 MG, BID
     Route: 048
     Dates: start: 20230225
  2. VONJO [Suspect]
     Active Substance: PACRITINIB
     Indication: Philadelphia chromosome positive
  3. BOSULIF [Concomitant]
     Active Substance: BOSUTINIB MONOHYDRATE
  4. CALTRATE [Concomitant]
     Active Substance: CALCIUM CARBONATE
  5. CARVEDILOL [Concomitant]
     Active Substance: CARVEDILOL
  6. ESTRADIOL [Concomitant]
     Active Substance: ESTRADIOL
  7. GLIPIZIDE [Concomitant]
     Active Substance: GLIPIZIDE
  8. HYDROCHLOROTHIAZIDE [Concomitant]
     Active Substance: HYDROCHLOROTHIAZIDE
  9. LASIX [Concomitant]
     Active Substance: FUROSEMIDE
  10. LOSARTAN [Concomitant]
     Active Substance: LOSARTAN
  11. MEVACOR [Concomitant]
     Active Substance: LOVASTATIN
  12. POTASSIUM CHLORIDE [Concomitant]
     Active Substance: POTASSIUM CHLORIDE
  13. SINGULAIR [Concomitant]
     Active Substance: MONTELUKAST SODIUM
  14. VITAMIN B12 [Concomitant]
     Active Substance: CYANOCOBALAMIN
  15. VITAMIN C [Concomitant]
     Active Substance: ASCORBIC ACID
  16. VITAMIN E [Concomitant]
     Active Substance: .ALPHA.-TOCOPHEROL

REACTIONS (2)
  - Incorrect dose administered [Unknown]
  - Off label use [Unknown]
